FAERS Safety Report 25899526 (Version 1)
Quarter: 2025Q4

REPORT INFORMATION
  Report Type: Spontaneous
  Country: US (occurrence: US)
  Receive Date: 20251009
  Receipt Date: 20251009
  Transmission Date: 20260118
  Serious: No
  Sender: ROCHE
  Company Number: US-ROCHE-10000401445

PATIENT
  Age: 75 Year
  Sex: Female
  Weight: 82.55 kg

DRUGS (23)
  1. XOLAIR PFS [Suspect]
     Active Substance: OMALIZUMAB
     Indication: Idiopathic urticaria
     Dosage: 300MG/2ML
     Route: 058
     Dates: start: 2023
  2. XOLAIR PFS [Suspect]
     Active Substance: OMALIZUMAB
  3. AMLODIPINE [Concomitant]
     Active Substance: AMLODIPINE BESYLATE
     Indication: Blood pressure measurement
  4. VITAMIN B12 [Concomitant]
     Active Substance: CYANOCOBALAMIN
     Indication: Vitamin B12 deficiency
  5. VITAMIN B12 [Concomitant]
     Active Substance: CYANOCOBALAMIN
     Indication: Folate deficiency
  6. ZYRTEC [Concomitant]
     Active Substance: CETIRIZINE HYDROCHLORIDE
     Indication: Urticaria
  7. CELECOXIB [Concomitant]
     Active Substance: CELECOXIB
     Indication: Anxiety
     Dosage: WROTE NOTE TO SELF TO ONLY TAKE 20MG/DAY
  8. CELECOXIB [Concomitant]
     Active Substance: CELECOXIB
     Indication: Depression
  9. FAMOTIDINE [Concomitant]
     Active Substance: FAMOTIDINE
     Indication: Urticaria
  10. FOLATE SODIUM [Concomitant]
     Active Substance: FOLATE SODIUM
     Indication: Folate deficiency
  11. FOLATE SODIUM [Concomitant]
     Active Substance: FOLATE SODIUM
     Indication: Vitamin B12 deficiency
  12. HYDROCORTISONE [Concomitant]
     Active Substance: HYDROCORTISONE
     Indication: Dermatitis
  13. XALATAN [Concomitant]
     Active Substance: LATANOPROST
     Dosage: AT NIGHT TIME
  14. LEVOTHYROXINE [Concomitant]
     Active Substance: LEVOTHYROXINE
     Indication: Urticaria
  15. OMEPRAZOLE [Concomitant]
     Active Substance: OMEPRAZOLE
     Indication: Barrett^s oesophagus
     Dosage: ONE IN THE MORNING; ONE IN THE EVENING
  16. SOLIFENACIN [Concomitant]
     Active Substance: SOLIFENACIN
  17. Triamterene-Hydrochlorothizide [Concomitant]
     Indication: Fluid retention
     Dosage: 37.5/35MG BUT BACK TO HALF OF A TABLET
  18. ALBUTEROL [Concomitant]
     Active Substance: ALBUTEROL
     Indication: Wheezing
     Dosage: 2 PUFFS PER DAY
  19. ALBUTEROL [Concomitant]
     Active Substance: ALBUTEROL
     Indication: Bronchitis
  20. EPINEPHRINE [Concomitant]
     Active Substance: EPINEPHRINE
     Indication: Idiopathic urticaria
  21. FLONASE [Concomitant]
     Active Substance: FLUTICASONE PROPIONATE
     Indication: Nasopharyngitis
  22. LORAZEPAM [Concomitant]
     Active Substance: LORAZEPAM
     Indication: Aerophobia
  23. PREDNISONE [Concomitant]
     Active Substance: PREDNISONE
     Indication: Urticaria
     Dosage: WHEN TRAVELING

REACTIONS (13)
  - Fall [Recovered/Resolved]
  - Product administration error [Unknown]
  - Accidental underdose [Unknown]
  - Dyskinesia [Unknown]
  - Drug delivery system malfunction [Unknown]
  - Peroneal nerve palsy [Unknown]
  - Vitamin B12 deficiency [Unknown]
  - Folate deficiency [Unknown]
  - Anxiety [Unknown]
  - Depression [Unknown]
  - Thyroid disorder [Unknown]
  - Barrett^s oesophagus [Unknown]
  - Head injury [Unknown]

NARRATIVE: CASE EVENT DATE: 20240101
